FAERS Safety Report 4366576-8 (Version None)
Quarter: 2004Q2

REPORT INFORMATION
  Report Type: 
  Country: None (occurrence: None)
  Receive Date: 20040524
  Receipt Date: 20040520
  Transmission Date: 20050107
  Serious: Yes (Hospitalization, Other)
  Sender: FDA-Public Use
  Company Number: ZONI001415

PATIENT
  Age: 49 Year
  Sex: Female

DRUGS (5)
  1. EXCEGRAN (ZONISAMIDE) [Suspect]
     Indication: CONVULSION
     Dosage: 200 MG DAILY ORAL
     Route: 048
     Dates: start: 20040227, end: 20040406
  2. ZITHROMAC (AZITHROMYCIN HYDRATE) [Suspect]
     Indication: NASOPHARYNGITIS
     Dates: start: 20040325, end: 20040406
  3. PL GRANULE (NON-PYRINE PREPARATION) [Suspect]
     Indication: NASOPHARYNGITIS
     Dosage: 3 G DAILY
     Dates: start: 20040325, end: 20040406
  4. METHYCOOL (MECOBARAMIN) [Concomitant]
  5. JUVELA NICOTINATE (TOCOPHERYL NICOTINATE) [Concomitant]

REACTIONS (6)
  - CHILLS [None]
  - EOSINOPHILIA [None]
  - HEPATIC FUNCTION ABNORMAL [None]
  - HEPATIC STEATOSIS [None]
  - NASOPHARYNGITIS [None]
  - STEVENS-JOHNSON SYNDROME [None]
